FAERS Safety Report 18955745 (Version 1)
Quarter: 2021Q1

REPORT INFORMATION
  Report Type: Report from Study
  Country: DE (occurrence: DE)
  Receive Date: 20210301
  Receipt Date: 20210301
  Transmission Date: 20210420
  Serious: Yes (Hospitalization)
  Sender: FDA-Public Use
  Company Number: DE-PFIZER INC-2021198174

PATIENT
  Sex: Female

DRUGS (18)
  1. METHOTREXATE SODIUM. [Suspect]
     Active Substance: METHOTREXATE SODIUM
     Dosage: 5 MG, UNKNOWN
     Route: 065
     Dates: start: 20200626
  2. ORENCIA [Suspect]
     Active Substance: ABATACEPT
     Dosage: 125 MG, UNKNOWN
     Route: 065
     Dates: start: 20170728
  3. ORENCIA [Suspect]
     Active Substance: ABATACEPT
     Dosage: 125 MG, UNKNOWN
     Route: 065
     Dates: start: 20181121
  4. ORENCIA [Suspect]
     Active Substance: ABATACEPT
     Dosage: 125 MG, UNKNOWN
     Route: 065
     Dates: start: 20180516
  5. METHOTREXATE SODIUM. [Suspect]
     Active Substance: METHOTREXATE SODIUM
     Dosage: 5 MG, UNKNOWN
     Route: 065
     Dates: start: 20191016
  6. METHOTREXATE SODIUM. [Suspect]
     Active Substance: METHOTREXATE SODIUM
     Dosage: 5 MG, UNKNOWN
     Route: 065
     Dates: start: 20171010
  7. METHOTREXATE SODIUM. [Suspect]
     Active Substance: METHOTREXATE SODIUM
     Dosage: 5 MG, UNKNOWN
     Route: 065
     Dates: start: 20180516
  8. NO SUBJECT DRUG [Suspect]
     Active Substance: UNSPECIFIED INGREDIENT
     Dosage: NO DOSE GIVEN
  9. METHOTREXATE SODIUM. [Suspect]
     Active Substance: METHOTREXATE SODIUM
     Dosage: 5 MG, UNKNOWN
     Route: 065
     Dates: start: 20190404
  10. ORENCIA [Suspect]
     Active Substance: ABATACEPT
     Dosage: 125 MG, QW
     Route: 058
     Dates: start: 201705
  11. ORENCIA [Suspect]
     Active Substance: ABATACEPT
     Dosage: 125 MG, UNKNOWN
     Route: 065
     Dates: start: 20190404, end: 201904
  12. ERELZI [Suspect]
     Active Substance: ETANERCEPT-SZZS
     Indication: RHEUMATOID ARTHRITIS
     Dosage: 50 MG, Q2W
     Route: 065
  13. METHOTREXATE SODIUM. [Suspect]
     Active Substance: METHOTREXATE SODIUM
     Dosage: 5 MG, UNKNOWN
     Route: 065
     Dates: start: 20181121
  14. ORENCIA [Suspect]
     Active Substance: ABATACEPT
     Dosage: 125 MG, UNKNOWN
     Route: 065
     Dates: start: 20171010
  15. METHOTREXATE SODIUM. [Suspect]
     Active Substance: METHOTREXATE SODIUM
     Dosage: 5 MG, QW
     Route: 065
  16. METHOTREXATE SODIUM. [Suspect]
     Active Substance: METHOTREXATE SODIUM
     Dosage: 5 MG, QW
     Route: 065
     Dates: start: 20170515
  17. METHOTREXATE SODIUM. [Suspect]
     Active Substance: METHOTREXATE SODIUM
     Dosage: 5 MG, UNKNOWN
     Route: 065
     Dates: start: 20170728
  18. ERELZI [Suspect]
     Active Substance: ETANERCEPT-SZZS
     Dosage: 50 MG, QW
     Route: 065
     Dates: start: 20190513

REACTIONS (2)
  - Oral herpes [Recovered/Resolved]
  - Lumbar spinal stenosis [Recovered/Resolved]

NARRATIVE: CASE EVENT DATE: 20191021
